FAERS Safety Report 4437251-6 (Version None)
Quarter: 2004Q3

REPORT INFORMATION
  Report Type: 
  Country: None (occurrence: None)
  Receive Date: 20040728
  Receipt Date: 20040328
  Transmission Date: 20050211
  Serious: No
  Sender: FDA-Public Use
  Company Number: WAES 0403USA02561

PATIENT
  Age: 48 Year
  Sex: Female

DRUGS (6)
  1. EMEND [Suspect]
     Indication: PROPHYLAXIS
     Dosage: 125 MG/1X/PO; SEE IMAGE
     Route: 048
     Dates: start: 20040319, end: 20040319
  2. ADRIAMYCIN PFS [Suspect]
     Indication: CHEMOTHERAPY
     Dosage: IV
     Route: 042
     Dates: start: 20040317
  3. CYTOXAN [Concomitant]
  4. DARVOCET-N 100 [Concomitant]
  5. DECADRON [Concomitant]
  6. KYTRIL [Concomitant]

REACTIONS (5)
  - HEADACHE [None]
  - HYPERACUSIS [None]
  - NEUROPATHY [None]
  - PALPITATIONS [None]
  - PHOTOSENSITIVITY REACTION [None]
